FAERS Safety Report 11114786 (Version 4)
Quarter: 2015Q2

REPORT INFORMATION
  Report Type: Spontaneous
  Country: IT (occurrence: None)
  Receive Date: 20150513
  Receipt Date: 20150622
  Transmission Date: 20150821
  Serious: Yes (Death, Other)
  Sender: FDA-Public Use
  Company Number: 2015FE00871

PATIENT
  Age: 86 Year
  Sex: Male

DRUGS (7)
  1. ESTRACYT /00327002/  (ESTRAMUSTINE PHOSPHATE SODIUM) [Concomitant]
  2. FIRMAGON [Suspect]
     Active Substance: DEGARELIX ACETATE
     Indication: PROSTATE CANCER
     Route: 058
     Dates: start: 20140313
  3. ZYTIGA [Suspect]
     Active Substance: ABIRATERONE ACETATE
     Indication: PROSTATE CANCER
     Route: 048
     Dates: start: 20140313, end: 20140707
  4. ABIRATERONE [Concomitant]
     Active Substance: ABIRATERONE
  5. DELTACORTENE (PREDNISONE) TABLET, 5MG [Suspect]
     Active Substance: PREDNISONE
     Indication: PROSTATE CANCER
     Route: 048
     Dates: start: 20140313, end: 20150301
  6. DOCETAXEL. [Concomitant]
     Active Substance: DOCETAXEL
  7. PREDNISONE. [Concomitant]
     Active Substance: PREDNISONE

REACTIONS (3)
  - Prostate cancer [None]
  - Pelvic fracture [None]
  - Traumatic fracture [None]

NARRATIVE: CASE EVENT DATE: 20150224
